FAERS Safety Report 6744454-4 (Version None)
Quarter: 2010Q2

REPORT INFORMATION
  Report Type: 
  Country: None (occurrence: None)
  Receive Date: 20100527
  Receipt Date: 20100517
  Transmission Date: 20101027
  Serious: Yes (Other)
  Sender: FDA-Public Use
  Company Number: US-PFIZER INC-2010052476

PATIENT
  Sex: Female
  Weight: 79.365 kg

DRUGS (12)
  1. CHANTIX [Suspect]
     Indication: SMOKING CESSATION THERAPY
     Dosage: 0.5 MG, 1X/DAY
     Route: 048
  2. CHANTIX [Suspect]
     Dosage: 1 MG, 2X/DAY
     Route: 048
  3. CHANTIX [Suspect]
     Dosage: UNK
     Route: 048
     Dates: start: 20100321
  4. VERAPAMIL [Concomitant]
     Indication: HEART RATE IRREGULAR
     Dosage: UNK
  5. KLOR-CON [Concomitant]
     Dosage: UNK
  6. LEVOTHYROXINE [Concomitant]
     Indication: THYROID DISORDER
     Dosage: UNK
  7. DARIFENACIN [Concomitant]
     Indication: POLLAKIURIA
     Dosage: UNK
  8. MIRAPEX [Concomitant]
     Indication: RESTLESS LEGS SYNDROME
     Dosage: UNK
  9. CYMBALTA [Concomitant]
     Dosage: UNK
  10. REMERON [Concomitant]
     Dosage: UNK
  11. VICODIN [Concomitant]
     Dosage: UNK
  12. VALSARTAN [Concomitant]
     Indication: HYPERTENSION
     Dosage: UNK

REACTIONS (3)
  - BREAST CANCER FEMALE [None]
  - INSOMNIA [None]
  - NIGHTMARE [None]
